FAERS Safety Report 7315084-0 (Version None)
Quarter: 2011Q1

REPORT INFORMATION
  Report Type: 
  Country: None (occurrence: None)
  Receive Date: 20110218
  Receipt Date: 20110218
  Transmission Date: 20110831
  Serious: Yes (Life-Threatening)
  Sender: FDA-Public Use
  Company Number: None

PATIENT
  Age: 28 Year
  Sex: Female

DRUGS (2)
  1. OMNIPAQUE 350 [Suspect]
     Indication: ABDOMEN SCAN
     Dates: start: 20110111
  2. DOXYCYCLINE [Concomitant]

REACTIONS (3)
  - PARAESTHESIA ORAL [None]
  - PRURITUS [None]
  - CONTRAST MEDIA REACTION [None]
